FAERS Safety Report 15592594 (Version 2)
Quarter: 2019Q2

REPORT INFORMATION
  Report Type: Report from Study
  Country: CH (occurrence: CH)
  Receive Date: 20181106
  Receipt Date: 20190416
  Transmission Date: 20190711
  Serious: Yes (Hospitalization, Disabling, Other)
  Sender: FDA-Public Use
  Company Number: CH-009507513-1811CHE000130

PATIENT
  Age: 69 Year
  Sex: Female

DRUGS (4)
  1. PEMBROLIZUMAB. [Suspect]
     Active Substance: PEMBROLIZUMAB
     Indication: ACRAL LENTIGINOUS MELANOMA
     Dosage: UNK
  2. PEMBROLIZUMAB. [Suspect]
     Active Substance: PEMBROLIZUMAB
     Indication: METASTATIC MALIGNANT MELANOMA
  3. TALIMOGENE LAHERPAREPVEC [Concomitant]
     Active Substance: TALIMOGENE LAHERPAREPVEC
     Indication: METASTATIC MALIGNANT MELANOMA
  4. TALIMOGENE LAHERPAREPVEC [Concomitant]
     Active Substance: TALIMOGENE LAHERPAREPVEC
     Indication: ACRAL LENTIGINOUS MELANOMA
     Dosage: UNK
     Route: 026

REACTIONS (1)
  - Sjogren^s syndrome [Recovering/Resolving]
